FAERS Safety Report 9511328 (Version 1)
Quarter: 2013Q1

REPORT INFORMATION
  Report Type: Spontaneous
  Country: US (occurrence: None)
  Receive Date: 20130305
  Receipt Date: 20130305
  Transmission Date: 20140127
  Serious: Yes (Hospitalization, Other)
  Sender: FDA-Public Use
  Company Number: 163-21880-11101574

PATIENT
  Age: 48 Year
  Sex: Female

DRUGS (15)
  1. REVLIMID [Suspect]
     Indication: COLORECTAL CANCER
     Dosage: 10 MG, 14 IN 14 D, PO
     Dates: start: 20110121, end: 20110304
  2. HYDROMORPHONE(HYDROMORPHONE)(UNKNOWN) [Concomitant]
  3. METOCLOPRAMIDE(METOCLOPRAMIDE)(UNKNOWN) [Concomitant]
  4. PRIMAXIN(PRIMAXIN)(UNKNOWN) [Concomitant]
  5. FLUOROURACIL(FLUOROURACIL)(UNKNOWN) [Concomitant]
  6. LEUCOVORIN(FOLINIC ACID)(UNKNOWN) [Concomitant]
  7. OXALIPLATIN(OXALIPLATIN)(UNKNOWN) [Concomitant]
  8. POTASSIUM(POTASSIUM)(UNKNOWN) [Concomitant]
  9. SOLU-MEDROL(METHYLPREDNISOLONE SODIUM [Concomitant]
  10. ALBUTEROL(SALBUTAMOL)(AEROSOL FOR INHALATION) [Concomitant]
  11. AMIODARONE(AMIODARONE)(UNKNOWN) [Concomitant]
  12. FERROUS SULFATE(FERROUS SULFATE)(UNKNOWN) [Concomitant]
  13. PULMICORT(BUDESONIDE)(UNKNOWN) [Concomitant]
  14. XOPENEX(LEVOSALBUTAMOL)(UNKNOWN) [Concomitant]
  15. LOPERAMIDE(LOPERAMIDE)(UNKNOWN) [Concomitant]

REACTIONS (4)
  - Colorectal cancer [None]
  - Disease progression [None]
  - Anaemia [None]
  - Leukopenia [None]
